FAERS Safety Report 6426531-0 (Version None)
Quarter: 2009Q4

REPORT INFORMATION
  Report Type: 
  Country: None (occurrence: None)
  Receive Date: 20091030
  Receipt Date: 20091019
  Transmission Date: 20100525
  Serious: Yes (Hospitalization)
  Sender: FDA-Public Use
  Company Number: 2009-04388

PATIENT
  Age: 70 Year
  Sex: Male
  Weight: 77 kg

DRUGS (10)
  1. VELCADE [Suspect]
     Indication: MULTIPLE MYELOMA
     Dosage: 2.5 MG, INTRAVENOUS
     Route: 042
     Dates: start: 20081209, end: 20090410
  2. BETAMETHASONE [Suspect]
     Indication: MULTIPLE MYELOMA
     Dosage: 120 MG, ORAL; 60 MG, ORAL
     Route: 048
     Dates: start: 20081209, end: 20090130
  3. BETAMETHASONE [Suspect]
     Indication: MULTIPLE MYELOMA
     Dosage: 120 MG, ORAL; 60 MG, ORAL
     Route: 048
     Dates: start: 20090216, end: 20090420
  4. ACYCLOVIR [Concomitant]
  5. ACETAMINOPHEN [Concomitant]
  6. OROVITE (THIAMINE HYDROCHLORIDE, RIBOFLAVIN, NICOTINAMIDE, PYRIDOXINE [Concomitant]
  7. DEXOFEN (DEXTROPROPOXYPHENE NAPSILATE) [Concomitant]
  8. HEPARIN [Concomitant]
  9. OXYCONTIN [Concomitant]
  10. OXYCODONE HCL [Concomitant]

REACTIONS (6)
  - BACK PAIN [None]
  - DISEASE PROGRESSION [None]
  - GENERAL PHYSICAL HEALTH DETERIORATION [None]
  - LIGHT CHAIN ANALYSIS INCREASED [None]
  - PAIN IN EXTREMITY [None]
  - PYREXIA [None]
